FAERS Safety Report 9128627 (Version 1)
Quarter: 2013Q1

REPORT INFORMATION
  Report Type: Spontaneous
  Country: CA (occurrence: CA)
  Receive Date: 20130228
  Receipt Date: 20130228
  Transmission Date: 20140127
  Serious: Yes (Other)
  Sender: FDA-Public Use
  Company Number: CA-TEVA-388744USA

PATIENT
  Age: 10 Year
  Sex: Female
  Weight: 11 kg

DRUGS (5)
  1. TOPIRAMATE [Suspect]
     Indication: CONVULSION
     Dosage: 25MG AM, 12.5MG PM, 25MG NOCTE
  2. VALPROIC ACID [Suspect]
     Indication: CONVULSION
     Dosage: 125MG AM, 62.5MG PM, 125MG NOCTE
  3. CARNITINE [Concomitant]
  4. LANSOPRAZOLE [Concomitant]
  5. CALCIUM CARBONATE [Concomitant]
     Dosage: 125MG DAILY

REACTIONS (2)
  - Fanconi syndrome [Recovered/Resolved]
  - Nephrocalcinosis [Recovering/Resolving]
